FAERS Safety Report 5874464-0 (Version None)
Quarter: 2008Q3

REPORT INFORMATION
  Report Type: 
  Country: None (occurrence: None)
  Receive Date: 20080908
  Receipt Date: 20080827
  Transmission Date: 20090109
  Serious: Yes (Other)
  Sender: FDA-Public Use
  Company Number: JP-PFIZER INC-2008072826

PATIENT
  Sex: Female

DRUGS (3)
  1. CABASER [Suspect]
     Indication: HYPERPROLACTINAEMIA
     Route: 048
  2. CABASER [Suspect]
     Indication: POLYCYSTIC OVARIES
  3. CLOMIPHENE CITRATE [Concomitant]

REACTIONS (1)
  - CAESAREAN SECTION [None]
